FAERS Safety Report 12677906 (Version 1)
Quarter: 2016Q3

REPORT INFORMATION
  Report Type: Spontaneous
  Country: US (occurrence: US)
  Receive Date: 20160823
  Receipt Date: 20160823
  Transmission Date: 20161109
  Serious: Yes (Hospitalization)
  Sender: FDA-Public Use
  Company Number: US-TARO-2016TAR00107

PATIENT
  Age: 31 Year
  Sex: Female
  Weight: 68.27 kg

DRUGS (12)
  1. WARFARIN SODIUM TABLETS USP 2.5MG [Suspect]
     Active Substance: WARFARIN SODIUM
     Indication: ANTICOAGULANT THERAPY
     Dosage: 1 TO 1.5 TABLETS, 1X/DAY
     Route: 048
     Dates: start: 1998
  2. VIMPAT [Concomitant]
     Active Substance: LACOSAMIDE
     Dosage: 5.5 TABLETS, 2X/DAY
     Route: 048
     Dates: start: 201108, end: 20160106
  3. LIOTHYRONINE SODIUM. [Concomitant]
     Active Substance: LIOTHYRONINE SODIUM
     Dosage: 1 TABLETS, 1X/DAY
     Route: 048
     Dates: start: 2000
  4. REVATIO [Concomitant]
     Active Substance: SILDENAFIL CITRATE
     Dosage: 0.5 TABLETS, 3X/DAY
     Route: 048
     Dates: start: 2010
  5. KEPPRA [Concomitant]
     Active Substance: LEVETIRACETAM
     Dosage: 4 TABLETS, 2X/DAY
     Route: 048
     Dates: start: 201108, end: 20160105
  6. KEPPRA [Concomitant]
     Active Substance: LEVETIRACETAM
     Dosage: 5 TABLETS, 2X/DAY
     Dates: start: 20160110
  7. PREDNISONE. [Concomitant]
     Active Substance: PREDNISONE
     Dosage: 1 TABLETS, 1X/DAY
     Route: 048
     Dates: start: 20061011
  8. ESCITALOPRAM [Concomitant]
     Active Substance: ESCITALOPRAM OXALATE
     Dosage: 1 TABLETS, 1X/DAY
     Route: 048
     Dates: start: 20061020
  9. RAPAMUNE [Concomitant]
     Active Substance: SIROLIMUS
     Dosage: 3 TABLETS, 1X/DAY
     Route: 048
     Dates: start: 20061011
  10. VIMPAT [Concomitant]
     Active Substance: LACOSAMIDE
     Dosage: 5.5 TABLETS, 2X/DAY
     Route: 048
     Dates: start: 20160113
  11. LEVOTHYROXINE. [Concomitant]
     Active Substance: LEVOTHYROXINE
     Dosage: 1 TABLETS, 1X/DAY
     Route: 048
     Dates: start: 199901
  12. FOLIC ACID. [Concomitant]
     Active Substance: FOLIC ACID
     Dosage: 1 TABLETS, 1X/DAY
     Route: 048
     Dates: start: 200001

REACTIONS (1)
  - International normalised ratio increased [Recovered/Resolved]

NARRATIVE: CASE EVENT DATE: 20160114
